FAERS Safety Report 25169637 (Version 2)
Quarter: 2025Q2

REPORT INFORMATION
  Report Type: Spontaneous
  Country: BE (occurrence: BE)
  Receive Date: 20250407
  Receipt Date: 20250417
  Transmission Date: 20250716
  Serious: Yes (Death, Hospitalization)
  Sender: TEVA
  Company Number: BE-TEVA-VS-3318160

PATIENT
  Age: 30 Year
  Sex: Male

DRUGS (6)
  1. SUMATRIPTAN [Suspect]
     Active Substance: SUMATRIPTAN
     Indication: Migraine
     Route: 048
  2. SUMATRIPTAN [Suspect]
     Active Substance: SUMATRIPTAN
     Indication: Migraine
     Route: 048
  3. PAROXETINE [Concomitant]
     Active Substance: PAROXETINE
     Indication: Mental disorder
     Route: 065
  4. LORAZEPAM [Concomitant]
     Active Substance: LORAZEPAM
     Indication: Mental disorder
     Route: 065
  5. VALPROIC ACID [Concomitant]
     Active Substance: VALPROIC ACID
     Indication: Mental disorder
     Route: 065
  6. CLOTHIAPINE [Concomitant]
     Active Substance: CLOTHIAPINE
     Indication: Mental disorder
     Route: 065

REACTIONS (8)
  - Arteriospasm coronary [Fatal]
  - Ventricular hypokinesia [Fatal]
  - Multiple organ dysfunction syndrome [Fatal]
  - Cardiogenic shock [Fatal]
  - Distributive shock [Fatal]
  - Myocardial hypoperfusion [Fatal]
  - Ventricular fibrillation [Fatal]
  - Cardiac arrest [Fatal]
